FAERS Safety Report 4642125-1 (Version None)
Quarter: 2005Q2

REPORT INFORMATION
  Report Type: 
  Country: None (occurrence: None)
  Receive Date: 20050422
  Receipt Date: 20050415
  Transmission Date: 20051028
  Serious: Yes (Death, Other)
  Sender: FDA-Public Use
  Company Number: PHBS2005GB05467

PATIENT
  Age: 22 Year
  Sex: Female

DRUGS (5)
  1. CYCLOSPORINE [Suspect]
     Indication: BONE MARROW TRANSPLANT
     Route: 065
  2. TRANSFUSIONS [Concomitant]
  3. CYCLOPHOSPHAMIDE [Concomitant]
     Indication: BONE MARROW TRANSPLANT
  4. IRRADIATION [Concomitant]
     Indication: BONE MARROW TRANSPLANT
  5. METHOTREXATE [Concomitant]
     Indication: BONE MARROW TRANSPLANT

REACTIONS (10)
  - ADENOVIRUS INFECTION [None]
  - BONE MARROW DEPRESSION [None]
  - BONE MARROW DISORDER [None]
  - BONE MARROW TRANSPLANT [None]
  - CHROMOSOME ANALYSIS ABNORMAL [None]
  - GRAFT VERSUS HOST DISEASE [None]
  - HAEMOGLOBIN DECREASED [None]
  - MYELODYSPLASTIC SYNDROME [None]
  - PLATELET COUNT DECREASED [None]
  - WHITE BLOOD CELL COUNT DECREASED [None]
